FAERS Safety Report 16029020 (Version 1)
Quarter: 2019Q1

REPORT INFORMATION
  Report Type: Spontaneous
  Country: US (occurrence: US)
  Receive Date: 20190304
  Receipt Date: 20190304
  Transmission Date: 20190418
  Serious: Yes (Hospitalization, Other)
  Sender: FDA-Public Use
  Company Number: US-JNJFOC-20190240224

PATIENT
  Age: 48 Year
  Sex: Female
  Weight: 108.7 kg

DRUGS (1)
  1. INVOKANA [Suspect]
     Active Substance: CANAGLIFLOZIN
     Indication: TYPE 2 DIABETES MELLITUS
     Route: 048
     Dates: start: 20161126

REACTIONS (6)
  - Extremity necrosis [Recovering/Resolving]
  - Toe amputation [Unknown]
  - Gas gangrene [Recovering/Resolving]
  - Osteomyelitis chronic [Recovering/Resolving]
  - Cellulitis [Recovering/Resolving]
  - Infected skin ulcer [Recovering/Resolving]

NARRATIVE: CASE EVENT DATE: 201710
